FAERS Safety Report 25940095 (Version 1)
Quarter: 2025Q4

REPORT INFORMATION
  Report Type: Report from Study
  Country: CA (occurrence: CA)
  Receive Date: 20251020
  Receipt Date: 20251020
  Transmission Date: 20260117
  Serious: Yes (Hospitalization)
  Sender: CSL BEHRING
  Company Number: CA-Vifor (International) Inc.-VIT-2024-00682

PATIENT
  Age: 70 Year
  Sex: Male

DRUGS (2)
  1. VELTASSA [Suspect]
     Active Substance: PATIROMER
     Dosage: 8.4 G, QD
     Route: 048
     Dates: start: 20230424
  2. VELTASSA [Suspect]
     Active Substance: PATIROMER
     Dosage: 1 DF, QD (ONE SACHET)
     Route: 048
     Dates: start: 20231027, end: 20251012

REACTIONS (5)
  - Product dose omission issue [Unknown]
  - Localised infection [Unknown]
  - Hospitalisation [Unknown]
  - Influenza [Unknown]
  - Illness [Unknown]

NARRATIVE: CASE EVENT DATE: 20231225
